FAERS Safety Report 5253273-X (Version None)
Quarter: 2007Q1

REPORT INFORMATION
  Report Type: 
  Country: None (occurrence: None)
  Receive Date: 20070301
  Receipt Date: 20070219
  Transmission Date: 20070707
  Serious: Yes (Hospitalization, Other)
  Sender: FDA-Public Use
  Company Number: US-ELI_LILLY_AND_COMPANY-US200702000997

PATIENT
  Age: 46 Year
  Sex: Female

DRUGS (1)
  1. FORTEO [Suspect]
     Indication: OSTEOPOROSIS
     Dates: start: 20060701

REACTIONS (8)
  - ADVERSE DRUG REACTION [None]
  - APPENDICEAL ABSCESS [None]
  - DYSFUNCTIONAL UTERINE BLEEDING [None]
  - ENDOMETRIAL HYPERPLASIA [None]
  - ENDOMETRIOSIS [None]
  - PAIN [None]
  - UTERINE POLYP [None]
  - VOMITING [None]
